FAERS Safety Report 9161332 (Version 3)
Quarter: 2022Q4

REPORT INFORMATION
  Report Type: Spontaneous
  Country: FR (occurrence: FR)
  Receive Date: 20130313
  Receipt Date: 20221128
  Transmission Date: 20230113
  Serious: Yes (Hospitalization, Other)
  Sender: FDA-Public Use
  Company Number: FR-PFIZER INC-2013081299

PATIENT
  Age: 79 Year
  Sex: Female

DRUGS (12)
  1. LYRICA [Suspect]
     Active Substance: PREGABALIN
     Indication: Product used for unknown indication
     Dosage: 100 MG, 2X/DAY REGIMEN DOSE UNIT: MILLIGRAM (2 TIMES 1 DF DAILY)
     Route: 048
  2. TROSPIUM CHLORIDE [Suspect]
     Active Substance: TROSPIUM CHLORIDE
     Indication: Product used for unknown indication
     Dosage: 20 MG, 1X/DAY REGIMEN DOSE UNIT: MILLIGRAM
     Route: 048
     Dates: end: 20120525
  3. MEMANTINE HYDROCHLORIDE [Suspect]
     Active Substance: MEMANTINE HYDROCHLORIDE
     Indication: Product used for unknown indication
     Dosage: 20 MG, 1X/DAY REGIMEN DOSE UNIT: MILLIGRAM ( 1 TIME 1 DF DAILY)
     Route: 048
     Dates: end: 20120525
  4. CYMBALTA [Suspect]
     Active Substance: DULOXETINE HYDROCHLORIDE
     Indication: Product used for unknown indication
     Dosage: 30 MG, 1X/DAY REGIMEN DOSE UNIT: MILLIGRAM ( 1 TIME 1 DF DAILY)
     Route: 048
     Dates: end: 20120525
  5. IMOVANE [Suspect]
     Active Substance: ZOPICLONE
     Indication: Product used for unknown indication
     Dosage: 7.5 MG, 1X/DAY REGIMEN DOSE UNIT: MILLIGRAM ( 1 TIME 1 DF DAILY)
     Route: 048
     Dates: end: 20120525
  6. SKENAN [Suspect]
     Active Substance: MORPHINE SULFATE
     Indication: Product used for unknown indication
     Dosage: 20 MG, 1X/DAY REGIMEN DOSE UNIT: MILLIGRAM ( 1 TIME 2 DF DAILY)
     Route: 048
  7. PIRACETAM [Suspect]
     Active Substance: PIRACETAM
     Indication: Product used for unknown indication
     Dosage: 2 DF, 1X/DAY REGIMEN DOSE UNIT: DOSAGE FORM (1 TIME 2 DF DAILY)
     Route: 048
     Dates: end: 20120525
  8. FOLIC ACID [Concomitant]
     Active Substance: FOLIC ACID
     Indication: Product used for unknown indication
     Dosage: 1 DF, 2X/DAY REGIMEN DOSE UNIT: DOSAGE FORM (2 TIME 1 DF DAILY)
     Route: 048
     Dates: end: 20120525
  9. LEVOTHYROXINE [Concomitant]
     Active Substance: LEVOTHYROXINE
     Indication: Product used for unknown indication
     Dosage: 100 UG, 1X/DAY REGIMEN DOSE UNIT: MICROGRAM
     Route: 048
  10. FUROSEMIDE [Concomitant]
     Active Substance: FUROSEMIDE
     Indication: Product used for unknown indication
     Dosage: 20 MG, 1X/DAY REGIMEN DOSE UNIT: MILLIGRAM
     Route: 048
  11. SPIRIVA [Concomitant]
     Active Substance: TIOTROPIUM BROMIDE MONOHYDRATE
     Indication: Product used for unknown indication
     Dosage: 18 UG, 1X/DAY REGIMEN DOSE UNIT: MICROGRAM (1 TIME 1 DF DAILY)
     Route: 055
     Dates: end: 20120525
  12. BECLOMETHASONE DIPROPIONATE [Concomitant]
     Active Substance: BECLOMETHASONE DIPROPIONATE
     Indication: Product used for unknown indication
     Dosage: UNK
     Route: 055
     Dates: end: 20120525

REACTIONS (3)
  - Respiratory distress [Recovered/Resolved]
  - Pyrexia [Recovered/Resolved]
  - Disturbance in attention [Recovered/Resolved]

NARRATIVE: CASE EVENT DATE: 20120525
